FAERS Safety Report 10043777 (Version 2)
Quarter: 2014Q1

REPORT INFORMATION
  Report Type: Report from Study
  Country: US (occurrence: US)
  Receive Date: 20140328
  Receipt Date: 20140328
  Transmission Date: 20141002
  Serious: Yes (Other)
  Sender: FDA-Public Use
  Company Number: US-BAYER-2014-036941

PATIENT
  Age: 56 Year
  Sex: Female

DRUGS (1)
  1. STIVARGA [Suspect]
     Indication: COLON CANCER
     Dosage: DAILY DOSE 160 MG, 4 TABLETS DAILY X 3 WEEKS THEN STOP X 1 WEEK
     Route: 048
     Dates: start: 20140301

REACTIONS (3)
  - Oral discomfort [None]
  - Constipation [None]
  - Adverse drug reaction [None]
